FAERS Safety Report 4664051-4 (Version None)
Quarter: 2005Q2

REPORT INFORMATION
  Report Type: 
  Country: None (occurrence: None)
  Receive Date: 20050510
  Receipt Date: 20050426
  Transmission Date: 20051028
  Serious: Yes (Life-Threatening, Hospitalization)
  Sender: FDA-Public Use
  Company Number: THYM-10490

PATIENT
  Age: 54 Year
  Sex: Male
  Weight: 71.9 kg

DRUGS (4)
  1. THYMOGLOBULIN [Suspect]
  2. CYCLOSPORINE [Concomitant]
  3. MYCOPHENOLATE  MOFETIL [Concomitant]
  4. PREDNISONE [Concomitant]

REACTIONS (3)
  - AGGRESSION [None]
  - DELIRIUM [None]
  - DYSPNOEA [None]
